FAERS Safety Report 13784019 (Version 1)
Quarter: 2017Q3

REPORT INFORMATION
  Report Type: Spontaneous
  Country: US (occurrence: US)
  Receive Date: 20170724
  Receipt Date: 20170724
  Transmission Date: 20171127
  Serious: Yes (Other)
  Sender: FDA-Public Use
  Company Number: US-CELGENEUS-USA-20170705499

PATIENT
  Age: 35 Year
  Sex: Female

DRUGS (3)
  1. BISOVI FE [Concomitant]
     Indication: CONTRACEPTION
     Route: 065
  2. MULTIPLE VITAMINS [Concomitant]
     Active Substance: VITAMINS
     Indication: CONTRACEPTION
     Route: 065
  3. OTEZLA [Suspect]
     Active Substance: APREMILAST
     Indication: PSORIASIS
     Dosage: 60 MILLIGRAM
     Route: 048
     Dates: start: 20170707

REACTIONS (2)
  - Diarrhoea [Recovered/Resolved]
  - Nausea [Recovered/Resolved]

NARRATIVE: CASE EVENT DATE: 20170707
